FAERS Safety Report 6556877-7 (Version None)
Quarter: 2010Q1

REPORT INFORMATION
  Report Type: 
  Country: None (occurrence: None)
  Receive Date: 20100128
  Receipt Date: 20100125
  Transmission Date: 20100710
  Serious: Yes (Death)
  Sender: FDA-Public Use
  Company Number: PHHY2010JP04128

PATIENT

DRUGS (1)
  1. SANDIMMUNE [Suspect]
     Indication: APLASTIC ANAEMIA

REACTIONS (2)
  - APLASTIC ANAEMIA [None]
  - DISEASE RECURRENCE [None]
